FAERS Safety Report 7511450-9 (Version None)
Quarter: 2011Q2

REPORT INFORMATION
  Report Type: 
  Country: None (occurrence: None)
  Receive Date: 20110519
  Receipt Date: 20110505
  Transmission Date: 20111010
  Serious: Yes (Other)
  Sender: FDA-Public Use
  Company Number: 2011AT000053

PATIENT
  Age: 81 Year
  Sex: Male

DRUGS (9)
  1. MOLSIDOMIN [Concomitant]
  2. ATORVASTATIN [Concomitant]
  3. TORSEMIDE [Concomitant]
  4. ASPIRIN [Concomitant]
  5. HYDROCHLOROTHIAZIDE [Concomitant]
  6. ALPROSTADIL [Suspect]
     Indication: PERIPHERAL ARTERIAL OCCLUSIVE DISEASE
     Dosage: 40 UG BID, IV
     Route: 042
     Dates: end: 20110130
  7. ALLOPURINOL [Concomitant]
  8. TILIDINE HYDROCHLORIDE [Concomitant]
  9. ENALAPRIL MALEATE [Concomitant]

REACTIONS (7)
  - URINARY TRACT INFECTION [None]
  - DYSPNOEA [None]
  - URETHRAL STENOSIS [None]
  - SKIN ULCER [None]
  - CARDIAC DISORDER [None]
  - TRICUSPID VALVE INCOMPETENCE [None]
  - HYPERAEMIA [None]
